FAERS Safety Report 13553050 (Version 4)
Quarter: 2020Q3

REPORT INFORMATION
  Report Type: Spontaneous
  Country: US (occurrence: US)
  Receive Date: 20170517
  Receipt Date: 20200713
  Transmission Date: 20201102
  Serious: Yes (Other)
  Sender: FDA-Public Use
  Company Number: US-PFIZER INC-2017215095

PATIENT
  Sex: Female
  Weight: 86.17 kg

DRUGS (5)
  1. PROTONIX [Suspect]
     Active Substance: PANTOPRAZOLE SODIUM
     Dosage: UNK
  2. LYRICA [Suspect]
     Active Substance: PREGABALIN
     Indication: FIBROMYALGIA
  3. NORCO [Concomitant]
     Active Substance: ACETAMINOPHEN\HYDROCODONE BITARTRATE
     Dosage: UNK
  4. LYRICA [Suspect]
     Active Substance: PREGABALIN
     Indication: PAIN
     Dosage: 150 MG, 3X/DAY
     Route: 048
  5. OXYCODONE [Concomitant]
     Active Substance: OXYCODONE
     Indication: PAIN
     Dosage: 10?325 MG EVERY 8 TO 12 HOURS, IF PAIN IS EXTREME TAKE EVERY 8 HOURS
     Route: 048

REACTIONS (15)
  - Depression [Unknown]
  - Abdominal pain upper [Unknown]
  - Vision blurred [Unknown]
  - Memory impairment [Unknown]
  - Sciatica [Unknown]
  - Hypoaesthesia [Unknown]
  - Hypothyroidism [Unknown]
  - Tremor [Unknown]
  - Pruritus [Unknown]
  - Headache [Unknown]
  - Mental status changes [Unknown]
  - Muscle spasms [Unknown]
  - Dizziness [Unknown]
  - Insomnia [Unknown]
  - Neuralgia [Unknown]
